FAERS Safety Report 21854089 (Version 2)
Quarter: 2023Q1

REPORT INFORMATION
  Report Type: Spontaneous
  Country: DE (occurrence: DE)
  Receive Date: 20230112
  Receipt Date: 20230119
  Transmission Date: 20230417
  Serious: Yes (Other)
  Sender: FDA-Public Use
  Company Number: DE-PFIZER INC-PV202200107784

PATIENT
  Sex: Female

DRUGS (2)
  1. METHOTREXATE [Suspect]
     Active Substance: METHOTREXATE
     Indication: Guttate psoriasis
     Dosage: INCREASING METHOTREXATE 15 MG/WK-20 MG/WK
     Route: 065
     Dates: start: 201705, end: 201710
  2. METHOTREXATE [Suspect]
     Active Substance: METHOTREXATE
     Indication: Psoriasis
     Dosage: 20 MILLIGRAM, QW
     Route: 065
     Dates: end: 201710

REACTIONS (3)
  - Leukopenia [Unknown]
  - Erythropenia [Unknown]
  - Therapeutic product effect incomplete [Unknown]
